FAERS Safety Report 10261170 (Version 1)
Quarter: 2014Q2

REPORT INFORMATION
  Report Type: Spontaneous
  Country: US (occurrence: US)
  Receive Date: 20140626
  Receipt Date: 20140626
  Transmission Date: 20141212
  Serious: Yes (Other)
  Sender: FDA-Public Use
  Company Number: US-BEH-2014043364

PATIENT
  Sex: Female

DRUGS (2)
  1. HIZENTRA [Suspect]
     Dosage: ??-???-2010; 2 SEPARATE INFUSIONS
  2. HIZENTRA [Suspect]

REACTIONS (1)
  - Infection susceptibility increased [Unknown]
